FAERS Safety Report 4710825-0 (Version None)
Quarter: 2005Q3

REPORT INFORMATION
  Report Type: 
  Country: None (occurrence: None)
  Receive Date: 20050706
  Receipt Date: 20050706
  Transmission Date: 20060218
  Serious: No
  Sender: FDA-Public Use
  Company Number: None

PATIENT
  Age: 42 Year
  Sex: Male

DRUGS (3)
  1. CLINDOMYCIN [Suspect]
     Indication: TOOTH INFECTION
     Dosage: 300 MG
     Dates: start: 20050414, end: 20050414
  2. CLINDOMYCIN [Suspect]
     Indication: TOOTHACHE
     Dosage: 300 MG
     Dates: start: 20050414, end: 20050414
  3. HYDROCODINE [Suspect]
     Indication: TOOTHACHE
     Dosage: 5/500
     Dates: start: 20050414, end: 20050414

REACTIONS (3)
  - ABDOMINAL PAIN [None]
  - VOMITING [None]
  - WHEEZING [None]
